FAERS Safety Report 9808890 (Version 5)
Quarter: 2015Q1

REPORT INFORMATION
  Report Type: Report from Study
  Country: US (occurrence: US)
  Receive Date: 20140110
  Receipt Date: 20150218
  Transmission Date: 20150721
  Serious: No
  Sender: FDA-Public Use
  Company Number: US-ALEXION-A201304596

PATIENT

DRUGS (1)
  1. SOLIRIS [Suspect]
     Active Substance: ECULIZUMAB
     Indication: PAROXYSMAL NOCTURNAL HAEMOGLOBINURIA
     Dosage: UNK
     Route: 042

REACTIONS (8)
  - Arthritis [Unknown]
  - Burning sensation [Recovering/Resolving]
  - Thrombosis [Recovered/Resolved]
  - Peripheral swelling [Recovering/Resolving]
  - Urinary tract infection [Unknown]
  - Back pain [Unknown]
  - Deep vein thrombosis [Not Recovered/Not Resolved]
  - Pain [Recovering/Resolving]

NARRATIVE: CASE EVENT DATE: 201409
